FAERS Safety Report 23420659 (Version 1)
Quarter: 2024Q1

REPORT INFORMATION
  Report Type: Spontaneous
  Country: CN (occurrence: CN)
  Receive Date: 20240119
  Receipt Date: 20240119
  Transmission Date: 20240409
  Serious: Yes (Other)
  Sender: FDA-Public Use
  Company Number: CN-SA-SAC20240117001541

PATIENT
  Age: 56 Year
  Sex: Male
  Weight: 56.8 kg

DRUGS (10)
  1. ENOXAPARIN SODIUM [Suspect]
     Active Substance: ENOXAPARIN SODIUM
     Indication: Anticoagulant therapy
     Dosage: 0.4 ML, QD
     Route: 058
     Dates: start: 20231205, end: 20231214
  2. FUROSEMIDE [Suspect]
     Active Substance: FUROSEMIDE
     Indication: Polyuria
     Dosage: 20 MG, QD
     Route: 048
     Dates: start: 20231206, end: 20231212
  3. HERBALS [Suspect]
     Active Substance: HERBALS
     Indication: Productive cough
     Dosage: 0.3 G, TID
     Route: 048
     Dates: start: 20231205, end: 20231220
  4. CEFTRIAXONE SODIUM [Suspect]
     Active Substance: CEFTRIAXONE SODIUM
     Indication: Upper respiratory tract infection
     Dosage: 2 G, QD
     Route: 041
     Dates: start: 20231206, end: 20231212
  5. METHYLPREDNISOLONE SODIUM SUCCINATE [Suspect]
     Active Substance: METHYLPREDNISOLONE SODIUM SUCCINATE
     Indication: Myocarditis
     Dosage: 80 MG, BID
     Route: 041
     Dates: start: 20231206, end: 20231209
  6. TRIMETAZIDINE DIHYDROCHLORIDE [Suspect]
     Active Substance: TRIMETAZIDINE DIHYDROCHLORIDE
     Indication: Myocardial infarction
     Dosage: 35 MG, BID
     Route: 048
     Dates: start: 20231205, end: 20231220
  7. IODIXANOL [Suspect]
     Active Substance: IODIXANOL
     Indication: Scan with contrast
     Dosage: 32 G, QD
     Route: 042
     Dates: start: 20231206, end: 20231206
  8. SPIRONOLACTONE [Suspect]
     Active Substance: SPIRONOLACTONE
     Indication: Polyuria
     Dosage: 20 MG, QD
     Route: 048
     Dates: start: 20231206, end: 20231212
  9. SODIUM CHLORIDE [Concomitant]
     Active Substance: SODIUM CHLORIDE
     Indication: Vehicle solution use
     Dosage: 100 ML, QD
     Route: 041
     Dates: start: 20231206, end: 20231209
  10. SODIUM CHLORIDE [Concomitant]
     Active Substance: SODIUM CHLORIDE
     Dosage: 100 ML, QD
     Route: 041
     Dates: start: 20231206, end: 20231212

REACTIONS (2)
  - Dermatitis allergic [Unknown]
  - Rash [Unknown]

NARRATIVE: CASE EVENT DATE: 20231208
